FAERS Safety Report 18316642 (Version 2)
Quarter: 2020Q4

REPORT INFORMATION
  Report Type: Spontaneous
  Country: US (occurrence: US)
  Receive Date: 20200928
  Receipt Date: 20201008
  Transmission Date: 20210113
  Serious: Yes (Other)
  Sender: FDA-Public Use
  Company Number: US-AMGEN-USASP2020152869

PATIENT
  Age: 57 Year
  Sex: Female

DRUGS (13)
  1. PROLIA [Suspect]
     Active Substance: DENOSUMAB
     Indication: OSTEOPOROSIS POSTMENOPAUSAL
     Dosage: UNK UNK, Q6MO
     Route: 058
     Dates: start: 2017, end: 201711
  2. ALPRAZOLAM. [Concomitant]
     Active Substance: ALPRAZOLAM
     Dosage: 0.5 MILLIGRAM
     Dates: start: 20191029
  3. DULOXETINE. [Concomitant]
     Active Substance: DULOXETINE
     Dosage: 30 MILLIGRAM  CAPSULLE,DELAYED RELEASE
     Dates: start: 20191001
  4. TRAZODONE [Concomitant]
     Active Substance: TRAZODONE HYDROCHLORIDE
     Dosage: 50 MILLIGRAM TABLET
     Dates: start: 20190830
  5. VIT B 12 [Concomitant]
     Active Substance: CYANOCOBALAMIN
     Dosage: 1000 MICROGRAM PER MILLILITRE
     Dates: start: 20191020
  6. FUROSEMIDE. [Concomitant]
     Active Substance: FUROSEMIDE
     Dosage: 20 MILLIGRAM TABLET
     Dates: start: 20191009
  7. TIZANIDINE. [Concomitant]
     Active Substance: TIZANIDINE
     Dosage: 2 MILLIGRAM CAPSULE
     Dates: start: 20191018
  8. CYMBALTA [Concomitant]
     Active Substance: DULOXETINE HYDROCHLORIDE
     Indication: DEPRESSION
     Dosage: AT NIGHT
  9. PROLIA [Suspect]
     Active Substance: DENOSUMAB
     Dosage: 60 MILLIGRAM, Q6MO
     Route: 058
     Dates: start: 20200916
  10. LINZESS [Concomitant]
     Active Substance: LINACLOTIDE
     Dosage: 290 MICROGRAM CAPSULE
     Dates: start: 20191023
  11. ACARBOSE. [Concomitant]
     Active Substance: ACARBOSE
     Indication: POSTPRANDIAL HYPOGLYCAEMIA
     Dosage: 100 MILLIGRAM, TID FOR 90 DAYS
     Route: 048
     Dates: start: 20200731
  12. ATORVASTATIN [Concomitant]
     Active Substance: ATORVASTATIN
     Dosage: 20 MILLIGRAM
     Dates: start: 20191003
  13. DIAZEPAM. [Concomitant]
     Active Substance: DIAZEPAM
     Dosage: 10 MILLIGRAM TABLET
     Dates: start: 20191023

REACTIONS (9)
  - Wrong technique in product usage process [Unknown]
  - Spinal fracture [Unknown]
  - Foot fracture [Unknown]
  - Weight decreased [Unknown]
  - Road traffic accident [Unknown]
  - Therapeutic product effect delayed [Unknown]
  - Lower limb fracture [Unknown]
  - Fall [Unknown]
  - Vitamin D deficiency [Unknown]

NARRATIVE: CASE EVENT DATE: 2017
